FAERS Safety Report 20748841 (Version 2)
Quarter: 2022Q2

REPORT INFORMATION
  Report Type: Report from Study
  Country: CO (occurrence: CO)
  Receive Date: 20220426
  Receipt Date: 20220506
  Transmission Date: 20220721
  Serious: Yes (Hospitalization)
  Sender: FDA-Public Use
  Company Number: CO-BAYER-2022A059847

PATIENT
  Age: 85 Year
  Sex: Female

DRUGS (6)
  1. RIVAROXABAN [Suspect]
     Active Substance: RIVAROXABAN
     Indication: Atrial fibrillation
     Dosage: 20 MG, Q8HR
     Route: 048
     Dates: start: 20180920
  2. LOSARTAN [Concomitant]
     Active Substance: LOSARTAN
     Indication: Hypertension
     Dosage: UNK
  3. METOPROLOL [Concomitant]
     Active Substance: METOPROLOL
     Indication: Cardiomyopathy
     Dosage: UNK
  4. CALCITRIOL [Concomitant]
     Active Substance: CALCITRIOL
     Dosage: UNK
  5. HYDROCHLOROTHIAZIDE [Concomitant]
     Active Substance: HYDROCHLOROTHIAZIDE
     Dosage: UNK
  6. HYDROCHLOROTHIAZIDE [Concomitant]
     Active Substance: HYDROCHLOROTHIAZIDE
     Dosage: UNK

REACTIONS (5)
  - Amnesia [Recovered/Resolved]
  - Fall [Recovered/Resolved]
  - Haemorrhagic stroke [Recovered/Resolved with Sequelae]
  - Speech disorder [Recovered/Resolved with Sequelae]
  - Hemiparesis [Recovered/Resolved with Sequelae]

NARRATIVE: CASE EVENT DATE: 20220418
